FAERS Safety Report 8822543 (Version 4)
Quarter: 2013Q2

REPORT INFORMATION
  Report Type: Spontaneous
  Country: JP (occurrence: JP)
  Receive Date: 20121003
  Receipt Date: 20130423
  Transmission Date: 20140414
  Serious: Yes (Other)
  Sender: FDA-Public Use
  Company Number: JP-PFIZER INC-2012240787

PATIENT
  Age: 52 Year
  Sex: Male
  Weight: 70 kg

DRUGS (11)
  1. SUTENT [Suspect]
     Indication: RENAL CELL CARCINOMA
     Dosage: 50 MG, 1X/DAY
     Route: 048
     Dates: start: 20111027, end: 20111117
  2. SUTENT [Suspect]
     Dosage: 37.5 MG, 1X/DAY
     Route: 048
     Dates: start: 20111208, end: 20120105
  3. SUTENT [Suspect]
     Dosage: 50 MG, 1X/DAY
     Route: 048
     Dates: start: 20120119, end: 20120215
  4. SUTENT [Suspect]
     Dosage: 50 MG, 1X/DAY
     Route: 048
     Dates: start: 20120301, end: 20120328
  5. SUTENT [Suspect]
     Dosage: 50 MG, 1X/DAY
     Route: 048
     Dates: start: 20120412, end: 20120509
  6. SUTENT [Suspect]
     Dosage: 50 MG, 1X/DAY
     Route: 048
     Dates: start: 20120523, end: 20120620
  7. SUTENT [Suspect]
     Dosage: 37.5 MG, 1X/DAY
     Route: 048
     Dates: start: 20120707, end: 20120718
  8. SUTENT [Suspect]
     Dosage: 50 MG, 1X/DAY
     Dates: start: 20120719, end: 20120803
  9. SUTENT [Suspect]
     Dosage: UNK
     Dates: start: 20120823, end: 20120919
  10. VOLTAREN [Concomitant]
     Indication: PAIN MANAGEMENT
     Dosage: 25 MG, 3X/DAY
     Route: 048
  11. MUCOSTA [Concomitant]
     Indication: GASTRITIS PROPHYLAXIS
     Dosage: 100 MG, 3X/DAY
     Route: 048

REACTIONS (8)
  - Bursitis [Recovering/Resolving]
  - Hypertension [Not Recovered/Not Resolved]
  - Hyperuricaemia [Not Recovered/Not Resolved]
  - Hepatic function abnormal [Not Recovered/Not Resolved]
  - Hyperlipidaemia [Not Recovered/Not Resolved]
  - Palmar-plantar erythrodysaesthesia syndrome [Unknown]
  - Disease progression [Unknown]
  - Lymphangiosis carcinomatosa [Unknown]
